FAERS Safety Report 13483586 (Version 1)
Quarter: 2017Q2

REPORT INFORMATION
  Report Type: Spontaneous
  Country: ES (occurrence: ES)
  Receive Date: 20170426
  Receipt Date: 20170426
  Transmission Date: 20170830
  Serious: Yes (Hospitalization)
  Sender: FDA-Public Use
  Company Number: ES-ACCORD-050678

PATIENT
  Age: 72 Year
  Sex: Female
  Weight: 74 kg

DRUGS (1)
  1. CAPECITABINE ACCORD [Suspect]
     Active Substance: CAPECITABINE
     Indication: BREAST CANCER METASTATIC
     Dosage: STRENGTH: 500 MG.?3000 MG, DAILY
     Route: 048
     Dates: start: 20160412, end: 20160504

REACTIONS (1)
  - Prinzmetal angina [Recovered/Resolved]

NARRATIVE: CASE EVENT DATE: 20160412
